FAERS Safety Report 9878603 (Version 1)
Quarter: 2014Q1

REPORT INFORMATION
  Report Type: Spontaneous
  Country: US (occurrence: US)
  Receive Date: 20140206
  Receipt Date: 20140206
  Transmission Date: 20141002
  Serious: No
  Sender: FDA-Public Use
  Company Number: US-ALLERGAN-1312655US

PATIENT
  Sex: Male

DRUGS (2)
  1. BOTOX COSMETIC [Suspect]
     Indication: SKIN WRINKLING
     Dosage: 22 UNITS, SINGLE
     Route: 030
     Dates: start: 201302, end: 201302
  2. BOTOX COSMETIC [Suspect]
     Indication: SKIN WRINKLING
     Dosage: 44 UNITS, SINGLE
     Route: 030
     Dates: start: 20130128, end: 20130128

REACTIONS (8)
  - Neurological symptom [Unknown]
  - Orthosis user [Unknown]
  - Dysstasia [Unknown]
  - Fall [Unknown]
  - Impaired driving ability [Unknown]
  - Dizziness [Unknown]
  - Asthenia [Unknown]
  - Drug ineffective [Unknown]
